FAERS Safety Report 20389236 (Version 1)
Quarter: 2022Q1

REPORT INFORMATION
  Report Type: Spontaneous
  Country: US (occurrence: US)
  Receive Date: 20220128
  Receipt Date: 20220128
  Transmission Date: 20220423
  Serious: No
  Sender: FDA-Public Use
  Company Number: US-ALLERGAN-2108718US

PATIENT
  Age: 40 Year
  Sex: Female
  Weight: 61.224 kg

DRUGS (7)
  1. BOTOX [Suspect]
     Active Substance: ONABOTULINUMTOXINA
     Indication: Migraine
     Dosage: 10 UNITS, SINGLE
     Route: 030
     Dates: start: 20201228, end: 20201228
  2. BOTOX [Suspect]
     Active Substance: ONABOTULINUMTOXINA
     Dosage: 5 UNITS, SINGLE
     Route: 030
     Dates: start: 20201228, end: 20201228
  3. BOTOX [Suspect]
     Active Substance: ONABOTULINUMTOXINA
     Dosage: 20 UNITS, SINGLE
     Route: 030
     Dates: start: 20201228, end: 20201228
  4. BOTOX [Suspect]
     Active Substance: ONABOTULINUMTOXINA
     Dosage: 40 UNITS, SINGLE
     Route: 030
     Dates: start: 20201228, end: 20201228
  5. BOTOX [Suspect]
     Active Substance: ONABOTULINUMTOXINA
     Dosage: 30 UNITS, SINGLE
     Route: 030
     Dates: start: 20201228, end: 20201228
  6. BOTOX [Suspect]
     Active Substance: ONABOTULINUMTOXINA
     Dosage: 20 UNITS, SINGLE
     Route: 030
     Dates: start: 20201228, end: 20201228
  7. BOTOX [Suspect]
     Active Substance: ONABOTULINUMTOXINA
     Dosage: 30 UNITS, SINGLE
     Route: 030
     Dates: start: 20201228, end: 20201228

REACTIONS (1)
  - Injection site pain [Recovered/Resolved]

NARRATIVE: CASE EVENT DATE: 20201228
